FAERS Safety Report 12262879 (Version 1)
Quarter: 2016Q2

REPORT INFORMATION
  Report Type: Spontaneous
  Country: DK (occurrence: GB)
  Receive Date: 20160413
  Receipt Date: 20160413
  Transmission Date: 20160815
  Serious: Yes (Other)
  Sender: FDA-Public Use
  Company Number: GB-FRI-1000083831

PATIENT
  Age: 35 Year
  Sex: Female
  Weight: 69.76 kg

DRUGS (1)
  1. CITALOPRAM [Suspect]
     Active Substance: CITALOPRAM HYDROBROMIDE
     Indication: ANXIETY
     Dosage: 10 MG
     Route: 048
     Dates: start: 20151001, end: 20160315

REACTIONS (7)
  - Depression [Recovered/Resolved]
  - Insomnia [Recovered/Resolved]
  - Memory impairment [Recovered/Resolved]
  - Malaise [Recovered/Resolved]
  - Dizziness [Recovered/Resolved]
  - Feeling abnormal [Recovered/Resolved]
  - Psychomotor hyperactivity [Recovered/Resolved]
